FAERS Safety Report 7002985-6 (Version None)
Quarter: 2010Q3

REPORT INFORMATION
  Report Type: 
  Country: None (occurrence: None)
  Receive Date: 20100920
  Receipt Date: 20100708
  Transmission Date: 20110219
  Serious: No
  Sender: FDA-Public Use
  Company Number: US-ASTRAZENECA-2010SE31846

PATIENT
  Age: 42 Year
  Sex: Female

DRUGS (8)
  1. SEROQUEL [Suspect]
     Indication: ANXIETY
     Route: 048
  2. SEROQUEL [Suspect]
     Indication: PSYCHOTIC DISORDER
     Route: 048
  3. SEROQUEL [Suspect]
     Dosage: AS REQUIRED
     Route: 048
  4. SEROQUEL [Suspect]
     Dosage: AS REQUIRED
     Route: 048
  5. SEROQUEL [Suspect]
     Route: 048
     Dates: start: 20090701, end: 20100706
  6. SEROQUEL [Suspect]
     Route: 048
     Dates: start: 20090701, end: 20100706
  7. VISTARIL [Concomitant]
  8. EFFEXOR [Concomitant]

REACTIONS (5)
  - DIZZINESS [None]
  - DRUG DOSE OMISSION [None]
  - FEELING ABNORMAL [None]
  - INCORRECT DOSE ADMINISTERED [None]
  - NAUSEA [None]
